FAERS Safety Report 10404194 (Version 1)
Quarter: 2014Q1

REPORT INFORMATION
  Report Type: Spontaneous
  Country: US (occurrence: None)
  Receive Date: 20131226
  Receipt Date: 20131226
  Transmission Date: 20141002
  Serious: Yes (Other)
  Sender: FDA-Public Use
  Company Number: PHEH2012US001647

PATIENT
  Age: 69 Year
  Sex: Male
  Weight: 92.4 kg

DRUGS (14)
  1. AFINITOR (RAD) [Suspect]
     Indication: RENAL CELL CARCINOMA
     Route: 048
     Dates: start: 20111212
  2. METFORMIN HYDROCHLORIDE (METFORMIN HYDROCHLORIDE) [Concomitant]
  3. GLIMEPIRIDE (GLIMEPIRIDE) [Concomitant]
  4. LEVEMIR (INSULIN DETERMIN) [Concomitant]
  5. GEMFIBROZIL (GEMFIBROZIL) [Concomitant]
  6. ALLOPURINOL (ALLOPURINOL) [Concomitant]
  7. METOPROLOL TARTRATE (METOPROLOL TARTRATE) [Concomitant]
  8. LOVASTATIN (LOVASTGATIN) [Concomitant]
  9. GLUCOSAMINE SULFAGTE (GLUCOSAMINE SULFATE) [Concomitant]
  10. FISH OIL (FISH OIL) [Concomitant]
  11. LIDOCAINE VISCOUS (LIDOCAINE HYDROCHLORIDE) [Concomitant]
  12. MORPHINE SULFATE (MORPHINE SULFATE) [Concomitant]
  13. ASPIRIN (ACETYLSALICYLIC ACID) [Concomitant]
  14. HYDROCORTISONE (HYDROCORTISONE) [Concomitant]

REACTIONS (9)
  - Neoplasm [None]
  - Oropharyngeal pain [None]
  - Tongue blistering [None]
  - Throat irritation [None]
  - Urticaria [None]
  - Rash [None]
  - Dysphagia [None]
  - Drug ineffective [None]
  - Malignant neoplasm progression [None]
